FAERS Safety Report 19738687 (Version 1)
Quarter: 2021Q3

REPORT INFORMATION
  Report Type: Spontaneous
  Country: IT (occurrence: IT)
  Receive Date: 20210823
  Receipt Date: 20210823
  Transmission Date: 20211014
  Serious: No
  Sender: FDA-Public Use
  Company Number: IT-LUPIN PHARMACEUTICALS INC.-2021-15408

PATIENT
  Age: 75 Year
  Sex: Male

DRUGS (6)
  1. ENOXAPARIN [Concomitant]
     Active Substance: ENOXAPARIN
     Indication: PROPHYLAXIS
     Dosage: 4000 INTERNATIONAL UNIT, BID
     Route: 065
     Dates: start: 2020
  2. ENOXAPARIN [Concomitant]
     Active Substance: ENOXAPARIN
     Indication: TRANSIENT ISCHAEMIC ATTACK
     Dosage: 6000 INTERNATIONAL UNIT, BID (FOLLOWING TRANSIENT ISCHEMIC ATTACK)
     Route: 065
     Dates: start: 2020
  3. ENOXAPARIN [Concomitant]
     Active Substance: ENOXAPARIN
     Dosage: 5000 INTERNATIONAL UNIT, BID
     Route: 065
     Dates: start: 2020
  4. HYDROXYCHLOROQUINE [Suspect]
     Active Substance: HYDROXYCHLOROQUINE
     Indication: COVID-19
     Dosage: UNK
     Route: 065
     Dates: start: 2020
  5. LOPINAVIR/RITONAVIR [Suspect]
     Active Substance: LOPINAVIR\RITONAVIR
     Indication: COVID-19
     Dosage: UNK
     Route: 065
     Dates: start: 2020
  6. ENOXAPARIN [Concomitant]
     Active Substance: ENOXAPARIN
     Dosage: 4000 INTERNATIONAL UNIT, BID (FOLLOWING DIAGNOSIS OF ILIOPSOAS HEMATOMA)
     Route: 065
     Dates: start: 2020

REACTIONS (1)
  - Off label use [Unknown]

NARRATIVE: CASE EVENT DATE: 2020
